FAERS Safety Report 8774842 (Version 1)
Quarter: 2012Q4

REPORT INFORMATION
  Report Type: 
  Country: BR (occurrence: BR)
  Receive Date: 20120910
  Receipt Date: 20120910
  Transmission Date: 20130627
  Serious: Yes (Other)
  Sender: FDA-Public Use
  Company Number: BR-JNJFOC-20120900473

PATIENT
  Age: 34 Year
  Sex: Female

DRUGS (1)
  1. EVRA [Suspect]
     Indication: PRODUCT USED FOR UNKNOWN INDICATION
     Route: 062

REACTIONS (3)
  - Abortion spontaneous [Recovered/Resolved]
  - Pregnancy with contraceptive patch [Recovered/Resolved]
  - Exposure during pregnancy [Recovered/Resolved]
